FAERS Safety Report 13946178 (Version 2)
Quarter: 2018Q4

REPORT INFORMATION
  Report Type: Spontaneous
  Country: PL (occurrence: PL)
  Receive Date: 20170907
  Receipt Date: 20181019
  Transmission Date: 20190204
  Serious: Yes (Life-Threatening, Other)
  Sender: FDA-Public Use
  Company Number: PL-ACCORD-058219

PATIENT
  Age: 59 Year
  Sex: Female
  Weight: 42 kg

DRUGS (2)
  1. ACCORD (OXALIPLATIN) [Suspect]
     Active Substance: OXALIPLATIN
     Indication: RETROPERITONEAL NEOPLASM
     Route: 042
     Dates: start: 20150907, end: 20160209
  2. FLUOROURACIL ACCORD [Suspect]
     Active Substance: FLUOROURACIL
     Indication: RETROPERITONEAL NEOPLASM
     Dosage: 1 DF  50 MG/ML,1068 MG FROM 07-SEP-2015 01:00:00 TO 09-FEB-2016 12:00:00
     Route: 042
     Dates: start: 20150907, end: 20160209

REACTIONS (5)
  - Neutropenia [Unknown]
  - Off label use [Unknown]
  - Polyneuropathy [Recovering/Resolving]
  - Weight decreased [Unknown]
  - Nausea [Unknown]

NARRATIVE: CASE EVENT DATE: 20151005
